FAERS Safety Report 24791797 (Version 2)
Quarter: 2025Q1

REPORT INFORMATION
  Report Type: Spontaneous
  Country: US (occurrence: US)
  Receive Date: 20241231
  Receipt Date: 20250106
  Transmission Date: 20250409
  Serious: No
  Sender: ELI LILLY AND COMPANY
  Company Number: US-ELI_LILLY_AND_COMPANY-US202412017932

PATIENT
  Age: 58 Year
  Sex: Female

DRUGS (2)
  1. ZEPBOUND [Suspect]
     Active Substance: TIRZEPATIDE
     Indication: Weight control
     Route: 058
     Dates: start: 20241101
  2. ZEPBOUND [Suspect]
     Active Substance: TIRZEPATIDE
     Route: 058
     Dates: start: 202412

REACTIONS (5)
  - COVID-19 [Unknown]
  - Product storage error [Unknown]
  - Decreased appetite [Unknown]
  - Nausea [Unknown]
  - Fatigue [Unknown]

NARRATIVE: CASE EVENT DATE: 20241101
